FAERS Safety Report 5339363-1 (Version None)
Quarter: 2007Q2

REPORT INFORMATION
  Report Type: 
  Country: None (occurrence: None)
  Receive Date: 20070322
  Receipt Date: 20061004
  Transmission Date: 20071010
  Serious: Yes (Other)
  Sender: FDA-Public Use
  Company Number: 200613673BCC

PATIENT
  Age: 70 Year
  Sex: Female
  Weight: 68.0396 kg

DRUGS (7)
  1. ALEVE [Suspect]
     Indication: PAIN
     Dosage: 440 MG, TOTAL DAILY; ORAL, 220 MG, QD; ORAL
     Route: 048
     Dates: start: 20060823, end: 20060826
  2. ALEVE [Suspect]
     Indication: PAIN
     Dosage: 440 MG, TOTAL DAILY; ORAL, 220 MG, QD; ORAL
     Route: 048
     Dates: start: 20030101
  3. SILICA (VEGETAL) [Concomitant]
  4. MAGNESIUM SULFATE [Concomitant]
  5. BIOTIN [Concomitant]
  6. CALCIUM CHLORIDE [Concomitant]
  7. SUPER BUFFERED VITAMIN C [Concomitant]

REACTIONS (9)
  - ASTHENIA [None]
  - BACK PAIN [None]
  - DIZZINESS [None]
  - DYSPNOEA [None]
  - HYPERSENSITIVITY [None]
  - NASAL CONGESTION [None]
  - NAUSEA [None]
  - SWELLING FACE [None]
  - WHEEZING [None]
